FAERS Safety Report 6661491-9 (Version None)
Quarter: 2010Q1

REPORT INFORMATION
  Report Type: 
  Country: None (occurrence: None)
  Receive Date: 20100331
  Receipt Date: 20100324
  Transmission Date: 20100710
  Serious: Yes (Hospitalization, Other)
  Sender: FDA-Public Use
  Company Number: JP-PFIZER INC-2010039395

PATIENT
  Age: 92 Year
  Sex: Female

DRUGS (1)
  1. ATARAX [Suspect]
     Indication: RESTLESSNESS
     Route: 042
     Dates: start: 20090921

REACTIONS (2)
  - FALL [None]
  - FOOT FRACTURE [None]
